FAERS Safety Report 21075234 (Version 5)
Quarter: 2022Q4

REPORT INFORMATION
  Report Type: Report from Study
  Country: US (occurrence: US)
  Receive Date: 20220713
  Receipt Date: 20221021
  Transmission Date: 20230113
  Serious: Yes (Other)
  Sender: FDA-Public Use
  Company Number: US-NOVARTISTESTPH-NVSC2022US158095

PATIENT
  Sex: Male

DRUGS (1)
  1. ENTRESTO [Suspect]
     Active Substance: SACUBITRIL\VALSARTAN
     Indication: Product used for unknown indication
     Dosage: 1 DOSAGE FORM, BID (97/103 MG)
     Route: 065
     Dates: start: 2021

REACTIONS (14)
  - Ejection fraction decreased [Unknown]
  - Diabetes mellitus [Unknown]
  - Osteoarthritis [Unknown]
  - Arthralgia [Recovering/Resolving]
  - Back pain [Unknown]
  - Intervertebral disc degeneration [Unknown]
  - Arthropathy [Not Recovered/Not Resolved]
  - Sciatica [Unknown]
  - Insomnia [Unknown]
  - Weight fluctuation [Unknown]
  - Hyperhidrosis [Unknown]
  - Blood pressure diastolic decreased [Unknown]
  - Dizziness postural [Unknown]
  - Wrong technique in product usage process [Unknown]
